FAERS Safety Report 9097337 (Version 3)
Quarter: 2013Q2

REPORT INFORMATION
  Report Type: Spontaneous
  Country: JP (occurrence: JP)
  Receive Date: 20130212
  Receipt Date: 20130405
  Transmission Date: 20140414
  Serious: Yes (Hospitalization)
  Sender: FDA-Public Use
  Company Number: JP-009507513-1302JPN003871

PATIENT
  Age: 36 Year
  Sex: Male
  Weight: 77 kg

DRUGS (6)
  1. PEGINTRON [Suspect]
     Indication: CHRONIC HEPATITIS C
     Dosage: 1.5 MICROGRAM PER KILOGRAM, QD
     Route: 058
     Dates: start: 20130122
  2. REBETOL [Suspect]
     Indication: CHRONIC HEPATITIS C
     Dosage: 600 MG, QD
     Route: 048
     Dates: start: 20130122, end: 20130227
  3. REBETOL [Suspect]
     Dosage: 400 MG, QD
     Route: 048
     Dates: start: 20130228
  4. TELAVIC [Suspect]
     Indication: CHRONIC HEPATITIS C
     Dosage: 1500 MG, QD
     Route: 048
     Dates: start: 20130122
  5. [COMPOSITION UNSPECIFIED] [Concomitant]
     Indication: ACNE
     Dosage: UNK, FORMULATION: EXT
     Route: 061
     Dates: start: 20130124
  6. FEBURIC [Concomitant]
     Dosage: 10 MG, QD
     Route: 048
     Dates: start: 20130130

REACTIONS (2)
  - Rash [Recovered/Resolved]
  - Hyperuricaemia [Recovered/Resolved]
